FAERS Safety Report 25368852 (Version 2)
Quarter: 2025Q3

REPORT INFORMATION
  Report Type: Spontaneous
  Country: EU (occurrence: EU)
  Receive Date: 20250528
  Receipt Date: 20250714
  Transmission Date: 20251021
  Serious: Yes (Other)
  Sender: PFIZER
  Company Number: EU-PFIZER INC-PV202500062308

PATIENT
  Age: 26 Year
  Sex: Female

DRUGS (8)
  1. METHOTREXATE [Suspect]
     Active Substance: METHOTREXATE
     Indication: Dermatitis atopic
     Dosage: 15 MG, WEEKLY
     Dates: start: 20161102
  2. METHOTREXATE SODIUM [Suspect]
     Active Substance: METHOTREXATE SODIUM
     Indication: Dermatitis atopic
     Dates: start: 201801
  3. PREDNISOLONE [Concomitant]
     Active Substance: PREDNISOLONE
     Dosage: 40 MG, DAILY
  4. FOLIC ACID [Concomitant]
     Active Substance: FOLIC ACID
  5. DICLOXACILLIN SODIUM [Concomitant]
     Active Substance: DICLOXACILLIN SODIUM
     Indication: Infection
     Dosage: 500 MG, 3X/DAY
  6. DIFLUCAN [Concomitant]
     Active Substance: FLUCONAZOLE
  7. NEURONTIN [Concomitant]
     Active Substance: GABAPENTIN
  8. METHYL AMINOLEVULINATE HYDROCHLORIDE [Concomitant]
     Active Substance: METHYL AMINOLEVULINATE HYDROCHLORIDE
     Indication: Dermatitis atopic

REACTIONS (3)
  - Periodontitis [Not Recovered/Not Resolved]
  - Osteoarthritis [Unknown]
  - Off label use [Unknown]

NARRATIVE: CASE EVENT DATE: 20211125
